FAERS Safety Report 9209299 (Version 1)
Quarter: 2013Q1

REPORT INFORMATION
  Report Type: Spontaneous
  Country: US (occurrence: None)
  Receive Date: 20120720
  Receipt Date: 20120720
  Transmission Date: 20140127
  Serious: Yes (Hospitalization)
  Sender: FDA-Public Use
  Company Number: 2012AL000046

PATIENT
  Sex: Male

DRUGS (2)
  1. FOLOTYN [Suspect]
     Dates: start: 2012, end: 2012
  2. ROMIDEPSIN [Suspect]
     Dates: start: 2012, end: 2012

REACTIONS (2)
  - Mucosal inflammation [None]
  - Blood bilirubin increased [None]
